FAERS Safety Report 8777455 (Version 5)
Quarter: 2012Q4

REPORT INFORMATION
  Report Type: 
  Country: FR (occurrence: FR)
  Receive Date: 20120911
  Receipt Date: 20121130
  Transmission Date: 20130627
  Serious: Yes (Hospitalization, Other)
  Sender: FDA-Public Use
  Company Number: FR-JNJFOC-20120900187

PATIENT
  Sex: Female

DRUGS (9)
  1. ARESTAL [Suspect]
     Indication: DIARRHOEA
     Dosage: 1 mg
     Route: 048
     Dates: start: 20120415, end: 20120430
  2. TITANOREINE [Suspect]
     Indication: HAEMORRHOIDS
     Route: 061
     Dates: start: 20120413, end: 20120430
  3. DAFLON [Suspect]
     Indication: HAEMORRHOIDS
     Dosage: 6 tablets daily during 5 days then 4 tablets daily during 4 days
     Route: 048
     Dates: start: 20120413, end: 20120430
  4. AUGMENTIN [Suspect]
     Indication: LUNG INFECTION
     Route: 048
     Dates: start: 20120424, end: 20120503
  5. RASILEZ [Suspect]
     Indication: HYPERTENSION
     Dosage: Rasilez HCT (300mg/25 mg)
     Route: 048
     Dates: start: 201107, end: 20120503
  6. HYPERIUM [Suspect]
     Indication: HYPERTENSION
     Route: 048
     Dates: start: 201107, end: 20120503
  7. DIFFU-K [Suspect]
     Indication: PRODUCT USED FOR UNKNOWN INDICATION
     Route: 048
     Dates: start: 201109, end: 20120503
  8. CLASTOBAN [Suspect]
     Indication: PRODUCT USED FOR UNKNOWN INDICATION
     Route: 048
     Dates: start: 2010, end: 20120504
  9. FUROSEMIDE [Concomitant]
     Indication: PRODUCT USED FOR UNKNOWN INDICATION
     Route: 065

REACTIONS (2)
  - Dermatitis exfoliative [Recovering/Resolving]
  - Anaemia [Recovered/Resolved]
